FAERS Safety Report 4270023-4 (Version None)
Quarter: 2004Q1

REPORT INFORMATION
  Report Type: 
  Country: None (occurrence: None)
  Receive Date: 20040114
  Receipt Date: 20021210
  Transmission Date: 20041129
  Serious: No
  Sender: FDA-Public Use
  Company Number: US-GLAXOSMITHKLINE-A0388713A

PATIENT
  Age: 49 Year
  Sex: Female

DRUGS (20)
  1. WELLBUTRIN [Suspect]
     Indication: DEPRESSION
     Dosage: 75MG IN THE MORNING
     Route: 048
     Dates: start: 20001101
  2. TEMAZEPAM [Concomitant]
  3. FOSAMAX [Concomitant]
  4. ESTRADIOL [Concomitant]
  5. PROMETRIUM [Concomitant]
  6. LAMICTAL [Concomitant]
  7. CELEBREX [Concomitant]
  8. CALCIUM [Concomitant]
  9. MAGNESIUM OXIDE [Concomitant]
  10. BORON [Concomitant]
  11. BIOTIN [Concomitant]
  12. VITAMIN E [Concomitant]
  13. VITAMIN C [Concomitant]
  14. GINGKO [Concomitant]
  15. MULTI-VITAMIN [Concomitant]
  16. GLUCOSAMINE [Concomitant]
  17. CHONDROITIN [Concomitant]
  18. VITAMIN B50 [Concomitant]
  19. CO Q10 [Concomitant]
  20. L-GLUTAMINE [Concomitant]

REACTIONS (1)
  - INSOMNIA [None]
